FAERS Safety Report 4371374-5 (Version None)
Quarter: 2004Q2

REPORT INFORMATION
  Report Type: 
  Country: None (occurrence: None)
  Receive Date: 20040601
  Receipt Date: 20040521
  Transmission Date: 20050107
  Serious: Yes (Life-Threatening, Hospitalization, Disabling)
  Sender: FDA-Public Use
  Company Number: 201776

PATIENT
  Age: 35 Year
  Sex: Male
  Weight: 88.5 kg

DRUGS (10)
  1. RITUXAN [Suspect]
     Indication: LYMPHOMA
     Dosage: 375 MG/M2, Q3W, INTRAVENOUS;  375 MG/M2, 1/WEEK, INTRAVENOUS
     Route: 042
     Dates: start: 20030207, end: 20030603
  2. RITUXAN [Suspect]
     Indication: LYMPHOMA
     Dosage: 375 MG/M2, Q3W, INTRAVENOUS;  375 MG/M2, 1/WEEK, INTRAVENOUS
     Route: 042
     Dates: start: 20030709, end: 20030723
  3. CYCLOPHOSPHAMIDE [Suspect]
     Indication: LYMPHOMA
     Dosage: 750 MG/M2, Q3W, INTRAVENOUS
     Route: 042
     Dates: start: 20030210, end: 20030603
  4. DOXORUBICIN HYDROCHLORIDE [Suspect]
     Indication: LYMPHOMA
     Dosage: 50 MG/M2, Q3W, INTRAVENOUS
     Route: 042
     Dates: start: 20030210, end: 20030603
  5. VINCRISTINE [Suspect]
     Indication: LYMPHOMA
     Dosage: 2 MG, Q3W, INTRAVENOUS
     Route: 042
     Dates: start: 20030210, end: 20030603
  6. PREDNISONE TAB [Suspect]
     Indication: LYMPHOMA
     Dosage: 100 MG, QDX5D/21DC, ORAL
     Route: 048
     Dates: start: 20030210, end: 20030603
  7. MULTI-VITAMINS [Concomitant]
  8. ADVIL [Concomitant]
  9. SUDAFED 12 HOUR [Concomitant]
  10. AMBIEN [Concomitant]

REACTIONS (13)
  - ATAXIA [None]
  - BALANCE DISORDER [None]
  - COGNITIVE DISORDER [None]
  - CONFABULATION [None]
  - COXSACKIE VIRAL INFECTION [None]
  - DISEASE PROGRESSION [None]
  - ENCEPHALITIS VIRAL [None]
  - LYMPHADENOPATHY [None]
  - MENINGITIS VIRAL [None]
  - MENTAL STATUS CHANGES [None]
  - TANGENTIALITY [None]
  - TONGUE DISORDER [None]
  - TREMOR [None]
